FAERS Safety Report 16148053 (Version 3)
Quarter: 2019Q2

REPORT INFORMATION
  Report Type: Report from Study
  Country: None (occurrence: US)
  Receive Date: 20190402
  Receipt Date: 20190620
  Transmission Date: 20190711
  Serious: Yes (Other)
  Sender: FDA-Public Use
  Company Number: US-ABBVIE-19K-163-2687790-00

PATIENT
  Age: 72 Year
  Sex: Female
  Weight: 63.56 kg

DRUGS (1)
  1. HUMIRA [Suspect]
     Active Substance: ADALIMUMAB
     Indication: CROHN^S DISEASE
     Route: 058
     Dates: start: 2004

REACTIONS (14)
  - Vein collapse [Unknown]
  - Hypoacusis [Not Recovered/Not Resolved]
  - General physical health deterioration [Recovering/Resolving]
  - Spinal compression fracture [Recovering/Resolving]
  - Cerebrovascular accident [Recovered/Resolved]
  - Asthenia [Unknown]
  - Haematochezia [Unknown]
  - Fall [Recovered/Resolved]
  - Cerebrovascular accident [Recovering/Resolving]
  - Diarrhoea [Unknown]
  - Crohn^s disease [Recovered/Resolved]
  - Blood pressure increased [Unknown]
  - Dysgraphia [Recovering/Resolving]
  - Feeding disorder [Recovering/Resolving]

NARRATIVE: CASE EVENT DATE: 20120104
